FAERS Safety Report 13961512 (Version 1)
Quarter: 2017Q3

REPORT INFORMATION
  Report Type: Spontaneous
  Country: DE (occurrence: DE)
  Receive Date: 20170912
  Receipt Date: 20170912
  Transmission Date: 20171128
  Serious: Yes (Death, Life-Threatening, Other)
  Sender: FDA-Public Use
  Company Number: DE-009507513-1709DEU004362

PATIENT
  Age: 76 Year
  Sex: Female

DRUGS (5)
  1. SERTRALINE HYDROCHLORIDE. [Suspect]
     Active Substance: SERTRALINE HYDROCHLORIDE
     Dosage: UNK
     Dates: start: 201506
  2. PIPAMPERONE [Concomitant]
     Active Substance: PIPAMPERONE
     Dosage: 30 MG,AS NEEDED, 1 DAY
     Dates: start: 201506
  3. L-THYROXIN [Suspect]
     Active Substance: LEVOTHYROXINE SODIUM
  4. REMERGIL [Suspect]
     Active Substance: MIRTAZAPINE
     Dosage: UNK
     Dates: start: 201508
  5. ACETAMINOPHEN. [Suspect]
     Active Substance: ACETAMINOPHEN
     Dosage: 500 MG, PRN

REACTIONS (1)
  - Completed suicide [Fatal]

NARRATIVE: CASE EVENT DATE: 20151031
